FAERS Safety Report 22874543 (Version 12)
Quarter: 2023Q4

REPORT INFORMATION
  Report Type: Report from Study
  Country: ES (occurrence: ES)
  Receive Date: 20230828
  Receipt Date: 20231113
  Transmission Date: 20240110
  Serious: Yes (Death, Hospitalization)
  Sender: FDA-Public Use
  Company Number: ES-AMGEN-ESPCT2023151442

PATIENT
  Age: 71 Year
  Sex: Male
  Weight: 67.3 kg

DRUGS (23)
  1. SOTORASIB [Suspect]
     Active Substance: SOTORASIB
     Indication: Colorectal cancer stage IV
     Dosage: 240 MILLIGRAM
     Route: 048
     Dates: start: 20230620, end: 20230823
  2. SOTORASIB [Suspect]
     Active Substance: SOTORASIB
     Indication: K-ras gene mutation
  3. PANITUMUMAB [Suspect]
     Active Substance: PANITUMUMAB
     Indication: Colorectal cancer stage IV
     Dosage: 396 MILLIGRAM
     Route: 042
     Dates: start: 20230620, end: 20230823
  4. PANITUMUMAB [Suspect]
     Active Substance: PANITUMUMAB
     Indication: K-ras gene mutation
  5. FLUOROURACIL [Suspect]
     Active Substance: FLUOROURACIL
     Indication: Colorectal cancer stage IV
     Dosage: 688 MILLIGRAM
     Route: 042
     Dates: start: 20230620
  6. FLUOROURACIL [Suspect]
     Active Substance: FLUOROURACIL
     Indication: K-ras gene mutation
     Dosage: 4128 MILLIGRAM
     Route: 042
     Dates: end: 20230823
  7. IRINOTECAN [Suspect]
     Active Substance: IRINOTECAN
     Indication: Colorectal cancer stage IV
     Dosage: 310 MILLIGRAM
     Route: 042
     Dates: start: 20230620, end: 20230823
  8. IRINOTECAN [Suspect]
     Active Substance: IRINOTECAN
     Indication: K-ras gene mutation
  9. LEUCOVORIN CALCIUM [Suspect]
     Active Substance: LEUCOVORIN CALCIUM
     Indication: Colorectal cancer stage IV
     Dosage: 688 MILLIGRAM
     Route: 042
     Dates: start: 20230620, end: 20230823
  10. LEUCOVORIN CALCIUM [Suspect]
     Active Substance: LEUCOVORIN CALCIUM
     Indication: K-ras gene mutation
  11. LORMETAZEPAM [Concomitant]
     Active Substance: LORMETAZEPAM
     Dosage: 1 MILLIGRAM
     Route: 048
     Dates: start: 20190301, end: 20230928
  12. BISOPROLOL [Concomitant]
     Active Substance: BISOPROLOL\BISOPROLOL FUMARATE
     Dosage: 2.5 MILLIGRAM
     Route: 048
     Dates: start: 20200918
  13. ENALAPRIL [Concomitant]
     Active Substance: ENALAPRIL
     Dosage: 20 MILLIGRAM
     Route: 048
     Dates: start: 20210622
  14. HYDROCHLOROTHIAZIDE [Concomitant]
     Active Substance: HYDROCHLOROTHIAZIDE
     Dosage: 12.5 MILLIGRAM
     Route: 048
     Dates: start: 20210622
  15. LEVETIRACETAM [Concomitant]
     Active Substance: LEVETIRACETAM
     Dosage: 500 MILLIGRAM
     Route: 048
     Dates: start: 20230517
  16. DEXAMETHASONE [Concomitant]
     Active Substance: DEXAMETHASONE
     Dosage: 4 MILLIGRAM
     Route: 048
     Dates: start: 20230524
  17. Doxicycline [Concomitant]
     Dosage: 100 MILLIGRAM
     Route: 048
     Dates: start: 20230620
  18. ACETAMINOPHEN [Concomitant]
     Active Substance: ACETAMINOPHEN
     Dosage: 1 GRAM
     Route: 048
     Dates: start: 20230622
  19. VALACYCLOVIR HYDROCHLORIDE [Concomitant]
     Active Substance: VALACYCLOVIR HYDROCHLORIDE
     Dosage: 500 MILLIGRAM
     Route: 048
     Dates: start: 20230801, end: 20230805
  20. METAMIZOLE [Concomitant]
     Active Substance: METAMIZOLE
     Dosage: 575 MILLIGRAM
     Route: 048
     Dates: start: 20230821
  21. METOCLOPRAMIDE [Concomitant]
     Active Substance: METOCLOPRAMIDE
     Dosage: 575 MILLIGRAM
     Route: 048
     Dates: start: 20230821
  22. PREDNISONE [Concomitant]
     Active Substance: PREDNISONE
     Dosage: 10-20 MILLIGRAM
     Route: 048
     Dates: start: 20230816, end: 20230830
  23. ONDANSETRON [Concomitant]
     Active Substance: ONDANSETRON
     Dosage: 4 MILLIGRAM
     Route: 048
     Dates: start: 20230620

REACTIONS (3)
  - Enteritis [Recovered/Resolved]
  - General physical health deterioration [Fatal]
  - Confusional state [Recovered/Resolved]

NARRATIVE: CASE EVENT DATE: 20230825
